FAERS Safety Report 23705617 (Version 7)
Quarter: 2024Q3

REPORT INFORMATION
  Report Type: Spontaneous
  Country: US (occurrence: US)
  Receive Date: 20240404
  Receipt Date: 20240911
  Transmission Date: 20241017
  Serious: Yes (Death, Disabling, Other)
  Sender: NOVARTIS
  Company Number: US-002147023-NVSC2024US072072

PATIENT
  Age: 68 Year
  Sex: Male
  Weight: 65.76 kg

DRUGS (16)
  1. PLUVICTO [Suspect]
     Active Substance: LUTETIUM LU-177 VIPIVOTIDE TETRAXETAN
     Indication: Prostate cancer
     Dosage: 7.4 GBQ, Q4W
     Route: 042
     Dates: start: 20240214, end: 20240214
  2. ELIGARD [Concomitant]
     Active Substance: LEUPROLIDE ACETATE
     Indication: Product used for unknown indication
     Dosage: EVERY 3 MONTHS
     Route: 058
     Dates: start: 20240131, end: 20240304
  3. HYDROCHLOROTHIAZIDE [Concomitant]
     Active Substance: HYDROCHLOROTHIAZIDE
     Indication: Product used for unknown indication
     Dosage: 1 DOSAGE FORM, QD
     Route: 048
     Dates: start: 20240403, end: 20240403
  4. LISINOPRIL [Concomitant]
     Active Substance: LISINOPRIL
     Indication: Product used for unknown indication
     Dosage: 01 DOSAGE FORM, QD
     Route: 048
  5. NAPROXEN [Concomitant]
     Active Substance: NAPROXEN
     Indication: Product used for unknown indication
     Dosage: 1 DOSAGE FORM, QD
     Route: 048
     Dates: start: 20240118, end: 20240403
  6. ONDANSETRON [Concomitant]
     Active Substance: ONDANSETRON
     Indication: Nausea
     Dosage: ONE PO Q12 HR PRN AS NEEDED FOR NAUSEA
     Route: 065
     Dates: start: 20240131, end: 20240403
  7. OXYCODONE [Concomitant]
     Active Substance: OXYCODONE
     Indication: Pain
     Dosage: 1 DOSAGE FORM EVERY 6-8HRS
     Route: 065
     Dates: start: 20231206, end: 20240403
  8. PREDNISONE [Concomitant]
     Active Substance: PREDNISONE
     Indication: Product used for unknown indication
     Dosage: 1 DOSAGE FORM, BID (WITH FOOD)
     Route: 065
     Dates: start: 20240131, end: 20240403
  9. PREDNISONE [Concomitant]
     Active Substance: PREDNISONE
     Dosage: 1 DOSAGE FORM, BID (WITH FOOD)
     Route: 065
     Dates: start: 20240222, end: 20240403
  10. PREDNISONE [Concomitant]
     Active Substance: PREDNISONE
     Dosage: 1 DOSAGE FORM, BID (WITH FOOD)
     Route: 065
     Dates: start: 20240308, end: 20240403
  11. PREDNISONE [Concomitant]
     Active Substance: PREDNISONE
     Dosage: 1 DOSAGE FORM, BID (WITH FOOD)
     Route: 065
     Dates: start: 20240403
  12. PREDNISONE [Concomitant]
     Active Substance: PREDNISONE
     Dosage: 1 DOSAGE FORM, BID (WITH FOOD)
     Route: 065
     Dates: start: 20240403
  13. PROCRIT [Concomitant]
     Active Substance: ERYTHROPOIETIN
     Indication: Product used for unknown indication
     Dosage: UNK, QW (INJECT 40000) UNITS SQ WEEKLY
     Route: 065
     Dates: start: 20240214, end: 20240403
  14. XTANDI [Concomitant]
     Active Substance: ENZALUTAMIDE
     Indication: Product used for unknown indication
     Dosage: UNK
     Route: 065
     Dates: start: 20240116, end: 20240403
  15. ZOLEDRONIC ACID [Concomitant]
     Active Substance: ZOLEDRONIC ACID
     Indication: Product used for unknown indication
     Dosage: EVERY 6MONTHS
     Route: 065
     Dates: start: 20240313, end: 20240403
  16. ASPIRIN [Concomitant]
     Active Substance: ASPIRIN
     Indication: Product used for unknown indication
     Dosage: 1 DOSAGE FORM, QD
     Route: 048
     Dates: start: 20240110

REACTIONS (10)
  - Death [Fatal]
  - General physical health deterioration [Fatal]
  - Ill-defined disorder [Fatal]
  - Pancytopenia [Fatal]
  - Anaemia [Fatal]
  - Weight decreased [Fatal]
  - Cancer pain [Fatal]
  - Metastasis [Fatal]
  - Oedema [Fatal]
  - Localised oedema [Unknown]

NARRATIVE: CASE EVENT DATE: 20240214
